FAERS Safety Report 15735770 (Version 3)
Quarter: 2019Q2

REPORT INFORMATION
  Report Type: Report from Study
  Country: None (occurrence: US)
  Receive Date: 20181218
  Receipt Date: 20190514
  Transmission Date: 20190711
  Serious: Yes (Hospitalization, Other)
  Sender: FDA-Public Use
  Company Number: US-ABBVIE-18K-163-2595399-00

PATIENT
  Age: 72 Year
  Sex: Female
  Weight: 118.04 kg

DRUGS (1)
  1. HUMIRA [Suspect]
     Active Substance: ADALIMUMAB
     Indication: PSORIASIS
     Route: 058
     Dates: end: 20190112

REACTIONS (3)
  - Fall [Not Recovered/Not Resolved]
  - Renal failure [Not Recovered/Not Resolved]
  - Sepsis [Unknown]
